FAERS Safety Report 5529059-5 (Version None)
Quarter: 2007Q4

REPORT INFORMATION
  Report Type: 
  Country: None (occurrence: None)
  Receive Date: 20071129
  Receipt Date: 20061128
  Transmission Date: 20080405
  Serious: No
  Sender: FDA-Public Use
  Company Number: A0623915A

PATIENT
  Age: 54 Year
  Sex: Female
  Weight: 59.1 kg

DRUGS (2)
  1. WELLBUTRIN SR [Suspect]
     Indication: DEPRESSION
     Route: 048
  2. XANAX [Concomitant]
     Indication: DEPRESSION
     Dosage: .25MG TWICE PER DAY
     Route: 048

REACTIONS (4)
  - ALOPECIA [None]
  - ANXIETY [None]
  - FLUSHING [None]
  - HEADACHE [None]
